FAERS Safety Report 8022219-3 (Version None)
Quarter: 2012Q1

REPORT INFORMATION
  Report Type: 
  Country: None (occurrence: None)
  Receive Date: 20120104
  Receipt Date: 20111228
  Transmission Date: 20120608
  Serious: Yes (Other)
  Sender: FDA-Public Use
  Company Number: US-JNJFOC-20111212194

PATIENT
  Sex: Male
  Weight: 50.8 kg

DRUGS (4)
  1. REMICADE [Suspect]
     Indication: CROHN'S DISEASE
     Route: 042
     Dates: start: 20111214
  2. PERCOCET [Concomitant]
     Indication: PAIN
  3. FOLIC ACID [Concomitant]
     Indication: MEDICAL DIET
  4. PENTASA [Concomitant]
     Indication: CROHN'S DISEASE
     Route: 048

REACTIONS (1)
  - HYPOAESTHESIA [None]
